FAERS Safety Report 9916030 (Version 1)
Quarter: 2014Q1

REPORT INFORMATION
  Report Type: Spontaneous
  Country: US (occurrence: None)
  Receive Date: 20140219
  Receipt Date: 20140219
  Transmission Date: 20141002
  Serious: Yes (Hospitalization)
  Sender: FDA-Public Use
  Company Number: QSC-2014-0087

PATIENT
  Age: 61 Year
  Sex: Female

DRUGS (1)
  1. H.P. ACTHAR GEL (ADRENOCORTICOTROPIC HORMONE) GEL FOR INJECTION, 80U/ML [Suspect]
     Indication: DERMATOMYOSITIS
     Dosage: UNK
     Dates: end: 201401

REACTIONS (5)
  - Acute myocardial infarction [None]
  - Anaemia [None]
  - Pneumonia bacterial [None]
  - Herpes zoster [None]
  - Asthenia [None]
